FAERS Safety Report 10442546 (Version 1)
Quarter: 2014Q3

REPORT INFORMATION
  Report Type: Spontaneous
  Country: US (occurrence: US)
  Receive Date: 20140909
  Receipt Date: 20140909
  Transmission Date: 20150326
  Serious: Yes (Hospitalization)
  Sender: FDA-Public Use
  Company Number: US-PFIZER INC-2014245897

PATIENT
  Age: 27 Year
  Sex: Female

DRUGS (1)
  1. INLYTA [Suspect]
     Active Substance: AXITINIB
     Indication: LUNG NEOPLASM MALIGNANT
     Dosage: 5 MG, 2X/DAY
     Dates: start: 20140705

REACTIONS (4)
  - Lung neoplasm malignant [Unknown]
  - Off label use [Unknown]
  - Disease progression [Unknown]
  - Cancer pain [Unknown]
